FAERS Safety Report 9013413 (Version 1)
Quarter: 2013Q1

REPORT INFORMATION
  Report Type: Spontaneous
  Country: FR (occurrence: FR)
  Receive Date: 20130114
  Receipt Date: 20130114
  Transmission Date: 20140127
  Serious: Yes (Death, Hospitalization, Disabling, Other)
  Sender: FDA-Public Use
  Company Number: FR-ASTRAZENECA-2013SE01702

PATIENT
  Age: 68 Year
  Sex: Female

DRUGS (13)
  1. SELOZOK [Suspect]
     Route: 048
  2. DOCOMEPRA [Suspect]
     Route: 048
  3. ASAFLOW [Suspect]
     Route: 048
  4. LIPITOR [Suspect]
     Route: 048
     Dates: start: 2009, end: 20121010
  5. BURINEX [Suspect]
     Route: 048
  6. COAPROVEL [Suspect]
     Dosage: 300/25 MG PER DAY
     Route: 048
  7. MEDROL [Suspect]
     Route: 048
  8. AURORIX [Suspect]
     Route: 048
  9. OXAZEPAM [Suspect]
     Route: 048
  10. VITAMINE D3 [Suspect]
     Route: 048
  11. BROCHOSEDAL CODEINATE [Suspect]
     Dosage: UNKNOWN DOSE, AS REQUIRED
     Route: 048
  12. LYRICA [Concomitant]
     Route: 048
     Dates: end: 20111220
  13. SINEQUAN [Concomitant]
     Indication: DEPRESSION
     Route: 048
     Dates: start: 20111205, end: 20111220

REACTIONS (19)
  - Death [Fatal]
  - Rhabdomyolysis [Recovering/Resolving]
  - Dysstasia [Unknown]
  - Hypothermia [Unknown]
  - Delirium [Unknown]
  - Fall [Unknown]
  - Paraparesis [Unknown]
  - Cirrhosis alcoholic [Unknown]
  - Polycythaemia [Unknown]
  - Macrocytosis [Unknown]
  - Renal failure [Unknown]
  - Confusional state [Unknown]
  - Thrombocytopenia [Unknown]
  - Hallucination, visual [Unknown]
  - Cough [Unknown]
  - Hypokalaemia [Unknown]
  - Hypothyroidism [Unknown]
  - Dyspnoea [Unknown]
  - Hallucination, auditory [Unknown]
